FAERS Safety Report 4914460-0 (Version None)
Quarter: 2006Q1

REPORT INFORMATION
  Report Type: 
  Country: None (occurrence: None)
  Receive Date: 20060113
  Receipt Date: 20050919
  Transmission Date: 20060701
  Serious: No
  Sender: FDA-Public Use
  Company Number: 2005SP002156

PATIENT
  Age: 57 Year
  Sex: Female
  Weight: 106.5953 kg

DRUGS (5)
  1. LUNESTA [Suspect]
     Indication: INSOMNIA
     Dosage: 3 MG; UNKNOWN ; ORAL
     Route: 048
     Dates: start: 20050628, end: 20050707
  2. ESTRATEST [Concomitant]
  3. ZOLOFT [Concomitant]
  4. HYDROCHLOROTHIAZIDE [Concomitant]
  5. TRAMADOL HCL [Concomitant]

REACTIONS (2)
  - GINGIVITIS [None]
  - STOMATITIS [None]
